FAERS Safety Report 19025392 (Version 1)
Quarter: 2021Q1

REPORT INFORMATION
  Report Type: Spontaneous
  Country: US (occurrence: US)
  Receive Date: 20210318
  Receipt Date: 20210318
  Transmission Date: 20210420
  Serious: Yes (Hospitalization, Other)
  Sender: FDA-Public Use
  Company Number: US-ACCORD-219915

PATIENT
  Age: 57 Year
  Sex: Female

DRUGS (5)
  1. DOXORUBICIN [Suspect]
     Active Substance: DOXORUBICIN
     Indication: ENDOMETRIAL CANCER
     Route: 033
  2. IFOSFAMIDE. [Suspect]
     Active Substance: IFOSFAMIDE
     Indication: ENDOMETRIAL CANCER
     Route: 042
  3. PACLITAXEL/PACLITAXEL LIPOSOME [Suspect]
     Active Substance: PACLITAXEL
     Indication: ENDOMETRIAL CANCER
     Dosage: IN 1 L OF HETASTARCH SOLUTION?160 MG
     Route: 033
  4. MESNA. [Concomitant]
     Active Substance: MESNA
     Dosage: PRIOR TO IFOSFAMIDE INFUSION, 4 H AFTER COMPLETION OF CHEMOTHERAPY
  5. CISPLATIN. [Suspect]
     Active Substance: CISPLATIN
     Indication: ENDOMETRIAL CANCER
     Dosage: HYPERTHERMIC INTRAPERITONEAL CHEMOTHER?APY
     Route: 033

REACTIONS (2)
  - Wound infection [Unknown]
  - Off label use [Unknown]
